FAERS Safety Report 18405570 (Version 1)
Quarter: 2020Q4

REPORT INFORMATION
  Report Type: Spontaneous
  Country: US (occurrence: US)
  Receive Date: 20201020
  Receipt Date: 20201020
  Transmission Date: 20210114
  Serious: No
  Sender: FDA-Public Use
  Company Number: US-PFIZER INC-2020404213

PATIENT
  Age: 56 Year
  Sex: Female

DRUGS (3)
  1. EUCRISA [Suspect]
     Active Substance: CRISABOROLE
     Indication: DERMATITIS ATOPIC
     Dosage: AS NEEDED (APPLY TOPICALLY TO AFFECTED AREAS ON HANDS AND EXTREMITIES FOR FLARES. PRN
     Route: 061
  2. CLOBETASOL [Concomitant]
     Active Substance: CLOBETASOL
     Dosage: UNK
  3. EUCRISA [Suspect]
     Active Substance: CRISABOROLE
     Dosage: 1X/DAY
     Route: 061

REACTIONS (2)
  - Skin disorder [Unknown]
  - Off label use [Unknown]
